FAERS Safety Report 4679105-6 (Version None)
Quarter: 2005Q2

REPORT INFORMATION
  Report Type: 
  Country: None (occurrence: None)
  Receive Date: 20050527
  Receipt Date: 20050303
  Transmission Date: 20051028
  Serious: No
  Sender: FDA-Public Use
  Company Number: PHEH2005US02733

PATIENT
  Sex: Female

DRUGS (4)
  1. ZELNORM [Suspect]
     Dosage: ORAL
     Route: 048
  2. PRILOSEC [Concomitant]
  3. CELEXA [Concomitant]
  4. IRON SUPPLEMENTS (NO INGREDIENTS/SUBSTANCES) [Concomitant]

REACTIONS (2)
  - CONDITION AGGRAVATED [None]
  - REFLUX GASTRITIS [None]
